FAERS Safety Report 6715475-2 (Version None)
Quarter: 2010Q2

REPORT INFORMATION
  Report Type: 
  Country: None (occurrence: None)
  Receive Date: 20100506
  Receipt Date: 20100506
  Transmission Date: 20101027
  Serious: Yes (Hospitalization)
  Sender: FDA-Public Use
  Company Number: None

PATIENT
  Age: 66 Year
  Sex: Male
  Weight: 65.8 kg

DRUGS (7)
  1. WARFARIN SODIUM [Suspect]
     Indication: DEEP VEIN THROMBOSIS
     Dosage: 5MG/3MG PO ALTERNATING DAYS (OUTPT MED)
     Route: 048
  2. TOLTERIDONE [Concomitant]
  3. CYCLOBENZAPRINE [Concomitant]
  4. TAMSULOSIN HCL [Concomitant]
  5. PAROXETINE HCL [Concomitant]
  6. QUETIAPINE [Concomitant]
  7. MIRTAZAPINE [Concomitant]

REACTIONS (3)
  - FAILURE TO THRIVE [None]
  - INTERNATIONAL NORMALISED RATIO INCREASED [None]
  - PAIN IN EXTREMITY [None]
